FAERS Safety Report 8858939 (Version 1)
Quarter: 2012Q4

REPORT INFORMATION
  Report Type: 
  Country: FR (occurrence: FR)
  Receive Date: 20121024
  Receipt Date: 20121024
  Transmission Date: 20130627
  Serious: Yes (Hospitalization)
  Sender: FDA-Public Use
  Company Number: FR-MERCK-1210FRA009904

PATIENT
  Sex: Male

DRUGS (13)
  1. CANCIDAS [Suspect]
     Indication: CANDIDIASIS
     Dosage: UNK
     Dates: start: 20111116
  2. AMIKACIN [Suspect]
     Indication: SEPTIC SHOCK
     Dosage: UNK
     Dates: start: 20111114
  3. TAZOCILLINE [Suspect]
     Indication: SEPTIC SHOCK
     Dosage: UNK
     Dates: start: 20111114
  4. VANCOMYCIN [Suspect]
     Indication: SEPTIC SHOCK
     Dosage: UNK
     Dates: start: 20111114
  5. VFEND [Suspect]
     Indication: BRONCHOPULMONARY ASPERGILLOSIS
     Dosage: UNK
     Dates: start: 20111116
  6. BACTRIM [Suspect]
     Indication: STENOTROPHOMONAS INFECTION
     Dosage: UNK
     Dates: start: 20111129
  7. CLAVENTIN [Suspect]
     Indication: STENOTROPHOMONAS INFECTION
     Dosage: UNK
     Dates: start: 20111129
  8. COVERSYL (PERINDOPRIL ARGININE) [Concomitant]
     Dosage: 5 mg, UNK
  9. KARDEGIC [Concomitant]
     Dosage: 160 mg, qd
  10. BISOPROLOL [Concomitant]
     Dosage: 5 mg, bid
  11. CRESTOR [Concomitant]
     Dosage: 10 mg, UNK
  12. ENDOXAN [Concomitant]
     Dosage: UNK
     Dates: start: 20111113
  13. VEPESIDE [Concomitant]
     Dosage: UNK
     Dates: start: 20111113

REACTIONS (3)
  - Rash maculo-papular [Unknown]
  - Urticaria [Unknown]
  - Stenotrophomonas infection [None]
